FAERS Safety Report 17824536 (Version 1)
Quarter: 2020Q2

REPORT INFORMATION
  Report Type: Spontaneous
  Country: US (occurrence: US)
  Receive Date: 20200526
  Receipt Date: 20200526
  Transmission Date: 20200714
  Serious: No
  Sender: FDA-Public Use
  Company Number: None

PATIENT
  Age: 63 Year
  Sex: Male
  Weight: 76.95 kg

DRUGS (21)
  1. LEVOTHYROXINE SODIUM. [Concomitant]
     Active Substance: LEVOTHYROXINE SODIUM
  2. SPIRONOLACTONE. [Concomitant]
     Active Substance: SPIRONOLACTONE
     Dates: end: 20200526
  3. ASPIRIN. [Concomitant]
     Active Substance: ASPIRIN
  4. VITAMIN D3 [Concomitant]
     Active Substance: CHOLECALCIFEROL
  5. VELCADE [Concomitant]
     Active Substance: BORTEZOMIB
  6. CARVEDILOL. [Concomitant]
     Active Substance: CARVEDILOL
     Dates: end: 20200526
  7. FUROSEMIDE. [Concomitant]
     Active Substance: FUROSEMIDE
     Dates: end: 20200526
  8. LOSARTAN. [Concomitant]
     Active Substance: LOSARTAN
     Dates: end: 20200526
  9. ACYCLOVIR. [Concomitant]
     Active Substance: ACYCLOVIR
  10. ALBUTEROL SULFATE. [Concomitant]
     Active Substance: ALBUTEROL SULFATE
  11. SIMVASTATIN. [Concomitant]
     Active Substance: SIMVASTATIN
  12. DEXAMETHASONE. [Concomitant]
     Active Substance: DEXAMETHASONE
  13. MYRBETRIQ [Concomitant]
     Active Substance: MIRABEGRON
  14. TYLENOL WITH CODEINE [Concomitant]
     Active Substance: ACETAMINOPHEN\CODEINE PHOSPHATE
  15. XPOVIO [Suspect]
     Active Substance: SELINEXOR
     Indication: PLASMA CELL MYELOMA
     Dosage: ?          OTHER FREQUENCY:WEEKLY;?
     Route: 048
     Dates: start: 20191206
  16. DULOXETINE. [Concomitant]
     Active Substance: DULOXETINE
  17. MIRTAZAPINE. [Concomitant]
     Active Substance: MIRTAZAPINE
  18. ZOFRAN [Concomitant]
     Active Substance: ONDANSETRON HYDROCHLORIDE
  19. AREDIA [Concomitant]
     Active Substance: PAMIDRONATE DISODIUM
  20. VITAMIN C [Concomitant]
     Active Substance: ASCORBIC ACID
  21. SPIRIVA [Concomitant]
     Active Substance: TIOTROPIUM BROMIDE MONOHYDRATE

REACTIONS (1)
  - Hypotension [None]

NARRATIVE: CASE EVENT DATE: 20200526
